FAERS Safety Report 22004673 (Version 1)
Quarter: 2023Q1

REPORT INFORMATION
  Report Type: Spontaneous
  Country: US (occurrence: US)
  Receive Date: 20230217
  Receipt Date: 20230217
  Transmission Date: 20230417
  Serious: Yes (Hospitalization, Other)
  Sender: FDA-Public Use
  Company Number: US-MYLANLABS-2023M1015461

PATIENT
  Age: 67 Year
  Sex: Male

DRUGS (49)
  1. METHADONE [Suspect]
     Active Substance: METHADONE HYDROCHLORIDE
     Indication: Cancer pain
     Dosage: 20 MILLIGRAM, Q8H (ON ENCOUNTER DAY 9)
     Route: 065
  2. METHADONE [Suspect]
     Active Substance: METHADONE HYDROCHLORIDE
     Dosage: 20 MILLIGRAM, Q6H (ON ENCOUNTER DAY 10)
     Route: 065
  3. METHADONE [Suspect]
     Active Substance: METHADONE HYDROCHLORIDE
     Dosage: 5 MILLIGRAM, Q6H (AS NEEDED, ON ENCOUNTER DAY 10..)
     Route: 065
  4. METHADONE [Suspect]
     Active Substance: METHADONE HYDROCHLORIDE
     Indication: Cancer pain
     Dosage: 10 MILLIGRAM, Q8H (ON DAY 1 TO 10...)
     Route: 048
  5. METHADONE [Suspect]
     Active Substance: METHADONE HYDROCHLORIDE
     Dosage: 5 MILLIGRAM, Q6H (AS NEEDED, ON DAY 1 TO 5..)
     Route: 048
  6. FENTANYL [Suspect]
     Active Substance: FENTANYL
     Indication: Cancer pain
     Dosage: 100 MICROGRAM, QH (ON DAY 6 TO 10 OF..)
     Route: 042
  7. FENTANYL [Suspect]
     Active Substance: FENTANYL
     Dosage: 300 MICROGRAM, QH, ON DAY 11 TO 16 OF..
     Route: 042
  8. FENTANYL [Suspect]
     Active Substance: FENTANYL
     Dosage: 600 MICROGRAM, QH, ONCE AS NEEDED, ON DAY 17 TO 19 OF..
     Route: 042
  9. FENTANYL [Suspect]
     Active Substance: FENTANYL
     Dosage: 400 MICROGRAM, OVER 30 MIN, AS NEEDED, ON DAY 25 TO 28 OF..
     Route: 042
  10. OXYCODONE [Suspect]
     Active Substance: OXYCODONE
     Indication: Cancer pain
     Dosage: UNK, Q4H (5 TO 10 MG AS NEEDED..)
     Route: 065
  11. OXYCODONE [Suspect]
     Active Substance: OXYCODONE
     Dosage: UNK, Q4H (15 TO 20 MG AS NEEDED..)
     Route: 065
  12. OXYCODONE [Suspect]
     Active Substance: OXYCODONE
     Dosage: 40 MILLIGRAM, Q4H (AS NEEDED, ON DAY 6..)
     Route: 065
  13. KETAMINE [Suspect]
     Active Substance: KETAMINE
     Indication: Cancer pain
     Dosage: 16 MILLIGRAM, QH (CONTINUOUS INFUSION, ON DAY..)
     Route: 042
  14. KETAMINE [Suspect]
     Active Substance: KETAMINE
     Dosage: 20 MILLIGRAM, QH (CONTINUOUS INFUSION, ON DAY 17..)
     Route: 042
  15. MORPHINE [Suspect]
     Active Substance: MORPHINE
     Indication: Cancer pain
     Dosage: 15 MILLIGRAM, Q8H (EXTENDED RELEASE, ON DAY..)
     Route: 065
  16. MORPHINE [Suspect]
     Active Substance: MORPHINE
     Dosage: 30 MILLIGRAM, Q8H (EXTENDED RELEASE, ON DAY 5..)
     Route: 065
  17. MORPHINE [Suspect]
     Active Substance: MORPHINE
     Dosage: 60 MILLIGRAM, Q8H (EXTENDED RELEASE, ON DAY 6..)
     Route: 065
  18. MORPHINE [Suspect]
     Active Substance: MORPHINE
     Dosage: 90 MILLIGRAM, Q8H (EXTENDED RELEASE, ON DAY 7..)
     Route: 065
  19. HYDROMORPHONE [Suspect]
     Active Substance: HYDROMORPHONE
     Indication: Cancer pain
     Dosage: 8 MILLIGRAM, Q8H (AS NEEDED. MAXIMUM BREAKTHROUGH..)
     Route: 042
  20. HYDROMORPHONE [Suspect]
     Active Substance: HYDROMORPHONE
     Dosage: UNK, Q4H (32 TO 34 MG AS NEEDED...)
     Route: 042
  21. MOGAMULIZUMAB [Concomitant]
     Active Substance: MOGAMULIZUMAB
     Indication: Cutaneous T-cell lymphoma
     Dosage: UNK
     Route: 065
  22. LORAZEPAM [Concomitant]
     Active Substance: LORAZEPAM
     Indication: Sedation
     Dosage: 0.5 MILLIGRAM, Q6H (AS NEEDED ON HOSPITAL..)
     Route: 042
  23. LORAZEPAM [Concomitant]
     Active Substance: LORAZEPAM
     Dosage: 1 MILLIGRAM, BID (ON HOSPITAL DAY 11 TO 19)
     Route: 042
  24. LORAZEPAM [Concomitant]
     Active Substance: LORAZEPAM
     Dosage: 1 MILLIGRAM, Q6H (ON HOSPITAL DAY 20 TO 28)
     Route: 042
  25. CYCLOPHOSPHAMIDE [Concomitant]
     Active Substance: CYCLOPHOSPHAMIDE
     Indication: Cutaneous T-cell lymphoma
     Dosage: UNK
     Route: 065
  26. BRENTUXIMAB [Concomitant]
     Active Substance: BRENTUXIMAB
     Indication: Cutaneous T-cell lymphoma
     Dosage: UNK
     Route: 065
  27. ETOPOSIDE [Concomitant]
     Active Substance: ETOPOSIDE
     Indication: Cutaneous T-cell lymphoma
     Dosage: UNK
     Route: 065
  28. GABAPENTIN [Concomitant]
     Active Substance: GABAPENTIN
     Indication: Analgesic therapy
     Dosage: 900 MILLIGRAM, Q8H, FROM DAY 1 TO 7 OF ENCOUNTER
     Route: 065
  29. GABAPENTIN [Concomitant]
     Active Substance: GABAPENTIN
     Dosage: 3000 MILLIGRAM, QD, ON DAY 9 AND 10 OF ENCOUNTER
     Route: 065
  30. GABAPENTIN [Concomitant]
     Active Substance: GABAPENTIN
     Dosage: 1200 MILLIGRAM, Q8H, FROM DAY 1 TO DAY 10...
     Route: 048
  31. METHADONE [Concomitant]
     Active Substance: METHADONE HYDROCHLORIDE
     Indication: Cancer pain
     Dosage: 5 MILLIGRAM, Q8H, AS NEEDED, ON DAY 11 TO 16..
     Route: 042
  32. METHADONE [Concomitant]
     Active Substance: METHADONE HYDROCHLORIDE
     Dosage: 4 MILLIGRAM, QH, ON DAY 17 TO 19 OF..
     Route: 042
  33. METHADONE [Concomitant]
     Active Substance: METHADONE HYDROCHLORIDE
     Dosage: 6 MILLIGRAM, QH, ON DAY 20 TO 28 OF..
     Route: 042
  34. ACETAMINOPHEN [Concomitant]
     Active Substance: ACETAMINOPHEN
     Indication: Neuralgia
     Dosage: 1 GRAM, Q8H, FROM ENCOUNTER DAY 1 TO 10 AND..
     Route: 042
  35. ACETAMINOPHEN [Concomitant]
     Active Substance: ACETAMINOPHEN
     Indication: Inflammatory pain
  36. IBUPROFEN [Concomitant]
     Active Substance: IBUPROFEN
     Indication: Cancer pain
     Dosage: 400 MILLIGRAM, BID (FROM ENCOUNTER DAY 1 TO 10)
     Route: 065
  37. PREDNISONE [Concomitant]
     Active Substance: PREDNISONE
     Indication: Neuralgia
     Dosage: 80 MILLIGRAM, QD, ON ENCOUNTER DAY 9
     Route: 065
  38. PREDNISONE [Concomitant]
     Active Substance: PREDNISONE
     Indication: Inflammatory pain
     Dosage: 30 MILLIGRAM, QD, ON ENCOUNTER DAY 10
     Route: 065
  39. DULOXETINE [Concomitant]
     Active Substance: DULOXETINE
     Indication: Inflammatory pain
     Dosage: 30 MILLIGRAM, QD, ON HOSPITAL DAY 1 TO 5..
     Route: 048
  40. DULOXETINE [Concomitant]
     Active Substance: DULOXETINE
     Indication: Neuralgia
  41. KETOROLAC [Concomitant]
     Active Substance: KETOROLAC TROMETHAMINE
     Indication: Neuralgia
     Dosage: 15 MILLIGRAM, Q6H, AS NEEDED ON HOSPITAL..
     Route: 042
  42. KETOROLAC [Concomitant]
     Active Substance: KETOROLAC TROMETHAMINE
     Indication: Inflammatory pain
  43. METHYLPREDNISOLONE [Concomitant]
     Active Substance: METHYLPREDNISOLONE
     Indication: Neuralgia
     Dosage: 70 MILLIGRAM, QD, ON HOSPITAL DAY 1 TO 16..
     Route: 042
  44. METHYLPREDNISOLONE [Concomitant]
     Active Substance: METHYLPREDNISOLONE
     Indication: Inflammatory pain
     Dosage: 60 MILLIGRAM, QD, ON HOSPITAL DAY 17 TO 19
     Route: 042
  45. METHYLPREDNISOLONE [Concomitant]
     Active Substance: METHYLPREDNISOLONE
     Dosage: 40 MILLIGRAM, QD, ON HOSPITAL DAY 20 TO 24
     Route: 042
  46. PROPOFOL [Concomitant]
     Active Substance: PROPOFOL
     Indication: Sedation
     Dosage: 50 MICROGRAM/KILOGRAM, QMINUTE, ON HOSPITAL DAY 17...
     Route: 042
  47. DEXMEDETOMIDINE [Concomitant]
     Active Substance: DEXMEDETOMIDINE
     Indication: Sedation
     Dosage: 1.4 MICROGRAM/KILOGRAM,QH,ON HOSPITAL DAY 11 TO 16
     Route: 042
  48. DEXMEDETOMIDINE [Concomitant]
     Active Substance: DEXMEDETOMIDINE
     Dosage: 0.6 MICROGRAM/KILOGRAM,QH,ON HOSPITAL DAY 17 TO 19
     Route: 042
  49. HALOPERIDOL [Concomitant]
     Active Substance: HALOPERIDOL
     Indication: Product used for unknown indication
     Dosage: 1 MILLIGRAM, QD, NIGHTLY AT BEDTIME, ON HOSPITAL..
     Route: 042

REACTIONS (11)
  - Hypertension [Unknown]
  - Tachycardia [Unknown]
  - Drug ineffective [Unknown]
  - Acute kidney injury [Unknown]
  - Disorientation [Unknown]
  - Bradycardia [Unknown]
  - Paranoia [Unknown]
  - Hallucination, visual [Unknown]
  - Thrombocytopenia [Unknown]
  - Sedation [Unknown]
  - Confusional state [Unknown]
